FAERS Safety Report 17219416 (Version 1)
Quarter: 2019Q4

REPORT INFORMATION
  Report Type: Spontaneous
  Country: US (occurrence: US)
  Receive Date: 20191230
  Receipt Date: 20191230
  Transmission Date: 20200122
  Serious: Yes (Death)
  Sender: FDA-Public Use
  Company Number: None

PATIENT
  Age: 74 Year
  Sex: Female
  Weight: 63 kg

DRUGS (1)
  1. PROLIA [Suspect]
     Active Substance: DENOSUMAB
     Indication: OSTEOPOROSIS
     Dosage: ?          OTHER FREQUENCY:EVERY 6 MONTHS;?
     Route: 030

REACTIONS (6)
  - Nausea [None]
  - Shock [None]
  - Pruritus [None]
  - Vomiting [None]
  - Hepatic failure [None]
  - Renal impairment [None]

NARRATIVE: CASE EVENT DATE: 20190906
